FAERS Safety Report 16244179 (Version 1)
Quarter: 2019Q2

REPORT INFORMATION
  Report Type: Spontaneous
  Country: US (occurrence: US)
  Receive Date: 20190322
  Receipt Date: 20190322
  Transmission Date: 20190711
  Serious: Yes (Hospitalization)
  Sender: FDA-Public Use
  Company Number: None

PATIENT
  Age: 63 Year
  Sex: Male
  Weight: 132.1 kg

DRUGS (3)
  1. CABAZITAXEL [Suspect]
     Active Substance: CABAZITAXEL
     Dates: end: 20190304
  2. ABIRATERONE ACETATE. [Suspect]
     Active Substance: ABIRATERONE ACETATE
     Dates: end: 20190314
  3. PREDNISONE. [Concomitant]
     Active Substance: PREDNISONE
     Dates: end: 20190314

REACTIONS (4)
  - Pyrexia [None]
  - Platelet count decreased [None]
  - White blood cell count abnormal [None]
  - Lethargy [None]

NARRATIVE: CASE EVENT DATE: 20190315
